FAERS Safety Report 15616828 (Version 2)
Quarter: 2019Q1

REPORT INFORMATION
  Report Type: Spontaneous
  Country: CA (occurrence: CA)
  Receive Date: 20181114
  Receipt Date: 20190107
  Transmission Date: 20190417
  Serious: Yes (Other)
  Sender: FDA-Public Use
  Company Number: CA-CELLTRION INC.-2018CA023258

PATIENT

DRUGS (6)
  1. INFLECTRA [Suspect]
     Active Substance: INFLIXIMAB-DYYB
     Dosage: 5 MG/KG, UNK (WEEK 0, 2,6 THEN MAINTENANCE EVERY 8 WEEKS);
     Route: 042
     Dates: start: 20180928
  2. INFLECTRA [Suspect]
     Active Substance: INFLIXIMAB-DYYB
     Indication: COLITIS ULCERATIVE
     Dosage: CYCLIC (WEEK 0, 2, 6 THEN MAINTENANCE EVERY 8 WEEKS)
     Route: 042
     Dates: start: 20180915
  3. INFLECTRA [Suspect]
     Active Substance: INFLIXIMAB-DYYB
     Dosage: 5 MG/KG, UNK (WEEK 0, 2,6 THEN MAINTENANCE EVERY 8 WEEKS);
     Route: 042
     Dates: start: 20181026
  4. INFLECTRA [Suspect]
     Active Substance: INFLIXIMAB-DYYB
     Dosage: 5 MG/KG, UNK (WEEK 0, 2,6 THEN MAINTENANCE EVERY 8 WEEKS);
     Route: 042
     Dates: start: 20181026
  5. CORTIMENT                          /00028601/ [Concomitant]
     Active Substance: HYDROCORTISONE
     Dosage: UNK
     Dates: start: 201807
  6. INFLECTRA [Suspect]
     Active Substance: INFLIXIMAB-DYYB
     Dosage: 10 MG/KG EVERY 6 WEEKS
     Route: 042
     Dates: start: 20181207

REACTIONS (9)
  - Weight increased [Unknown]
  - Blood pressure fluctuation [Unknown]
  - Product use issue [Unknown]
  - Hypertension [Unknown]
  - Malaise [Unknown]
  - Condition aggravated [Unknown]
  - Colitis [Unknown]
  - Proctitis [Unknown]
  - Skin cancer [Unknown]

NARRATIVE: CASE EVENT DATE: 20180928
